FAERS Safety Report 21002032 (Version 2)
Quarter: 2022Q3

REPORT INFORMATION
  Report Type: Spontaneous
  Country: US (occurrence: US)
  Receive Date: 20220624
  Receipt Date: 20220708
  Transmission Date: 20221026
  Serious: No
  Sender: FDA-Public Use
  Company Number: US-BRISTOL-MYERS SQUIBB COMPANY-2022-052915

PATIENT
  Age: 78 Year
  Sex: Female

DRUGS (1)
  1. POMALYST [Suspect]
     Active Substance: POMALIDOMIDE
     Indication: Plasma cell myeloma
     Dosage: 1 DF : 1 CAPSULE?FOR 21 DAYS FOLLOWED BY 1 WEEK OFF
     Route: 048
     Dates: start: 20180102

REACTIONS (3)
  - Product dose omission issue [Unknown]
  - Nail infection [Unknown]
  - Nausea [Unknown]
